FAERS Safety Report 8993117 (Version 1)
Quarter: 2013Q1

REPORT INFORMATION
  Report Type: Spontaneous
  Country: JP (occurrence: JP)
  Receive Date: 20130102
  Receipt Date: 20130102
  Transmission Date: 20140127
  Serious: Yes (Hospitalization, Other)
  Sender: FDA-Public Use
  Company Number: JP-ALLERGAN-1218045US

PATIENT
  Age: 57 Year
  Sex: Male

DRUGS (1)
  1. BOTOX [Suspect]
     Indication: MUSCLE SPASMS
     Dosage: 360 UNITS, SINGLE
     Route: 030
     Dates: start: 20121219, end: 20121219

REACTIONS (3)
  - Loss of consciousness [Not Recovered/Not Resolved]
  - Epilepsy [Unknown]
  - Off label use [Unknown]
